FAERS Safety Report 9321005 (Version 2)
Quarter: 2013Q2

REPORT INFORMATION
  Report Type: Spontaneous
  Country: US (occurrence: US)
  Receive Date: 20130531
  Receipt Date: 20130618
  Transmission Date: 20140414
  Serious: No
  Sender: FDA-Public Use
  Company Number: US-PFIZER INC-2013164700

PATIENT
  Age: 63 Year
  Sex: Female
  Weight: 79.82 kg

DRUGS (2)
  1. CELEBREX [Suspect]
     Indication: MUSCLE STRAIN
     Dosage: 200 MG, 1X/DAY
     Route: 048
     Dates: start: 20130523, end: 201305
  2. CELEBREX [Suspect]
     Indication: MUSCLE STRAIN

REACTIONS (3)
  - Eyelid oedema [Not Recovered/Not Resolved]
  - Erythema [Not Recovered/Not Resolved]
  - Ear pruritus [Not Recovered/Not Resolved]
